FAERS Safety Report 8982692 (Version 1)
Quarter: 2012Q4

REPORT INFORMATION
  Report Type: 
  Country: US (occurrence: US)
  Receive Date: 20121224
  Receipt Date: 20121224
  Transmission Date: 20130627
  Serious: Yes (Hospitalization)
  Sender: FDA-Public Use
  Company Number: US-JNJFOC-20121207617

PATIENT
  Age: 75 None
  Sex: Female
  Weight: 59.42 kg

DRUGS (4)
  1. FENTANYL TRANSDERMAL SYSTEM [Suspect]
     Indication: BACK PAIN
     Route: 062
     Dates: start: 2009, end: 2012
  2. SANDOZ FENTANYL TRANSDERMAL SYSTEM [Suspect]
     Indication: BACK PAIN
     Route: 062
     Dates: start: 2012
  3. LISINOPRIL [Concomitant]
     Indication: BLOOD PRESSURE
     Route: 048
     Dates: start: 2008, end: 201210
  4. LISINOPRIL [Concomitant]
     Indication: BLOOD PRESSURE
     Route: 048
     Dates: start: 201210

REACTIONS (10)
  - Thyroid disorder [Not Recovered/Not Resolved]
  - Heart rate increased [Recovered/Resolved]
  - Muscle spasms [Unknown]
  - Insomnia [Unknown]
  - Burning sensation [Unknown]
  - Poor quality drug administered [Recovered/Resolved]
  - Product quality issue [Unknown]
  - Product physical issue [Unknown]
  - Dizziness [Recovered/Resolved]
  - Fatigue [Unknown]
